FAERS Safety Report 22639485 (Version 1)
Quarter: 2023Q2

REPORT INFORMATION
  Report Type: Other
  Country: GB (occurrence: GB)
  Receive Date: 20230626
  Receipt Date: 20230626
  Transmission Date: 20230722
  Serious: Yes (Death)
  Sender: FDA-Public Use
  Company Number: GB-ALVOGEN-2023091745

PATIENT
  Age: 43 Year
  Sex: Male

DRUGS (8)
  1. FENTANYL [Suspect]
     Active Substance: FENTANYL
     Indication: Product used for unknown indication
  2. HEROIN [Suspect]
     Active Substance: DIAMORPHINE
     Indication: Product used for unknown indication
  3. COCAINE [Suspect]
     Active Substance: COCAINE
     Indication: Product used for unknown indication
  4. DIPHENHYDRAMINE [Concomitant]
     Active Substance: DIPHENHYDRAMINE
     Indication: Product used for unknown indication
  5. ACETAMINOPHEN [Concomitant]
     Active Substance: ACETAMINOPHEN
     Indication: Product used for unknown indication
  6. PREGABALIN [Concomitant]
     Active Substance: PREGABALIN
     Indication: Product used for unknown indication
  7. Diazepam (plus metabolite) [Concomitant]
     Indication: Product used for unknown indication
  8. Methadone (plus metabolite) [Concomitant]
     Indication: Product used for unknown indication

REACTIONS (2)
  - Toxicity to various agents [Fatal]
  - Pneumonitis aspiration [Fatal]
